FAERS Safety Report 24114374 (Version 1)
Quarter: 2024Q3

REPORT INFORMATION
  Report Type: Spontaneous
  Country: GB (occurrence: GB)
  Receive Date: 20240720
  Receipt Date: 20240720
  Transmission Date: 20241016
  Serious: Yes (Other)
  Sender: RANBAXY
  Company Number: GB-MHRA-MED-202405021620266850-LPFHM

PATIENT
  Sex: Female

DRUGS (1)
  1. SERTRALINE [Suspect]
     Active Substance: SERTRALINE HYDROCHLORIDE
     Indication: Product used for unknown indication
     Dosage: 25 MILLIGRAM, DAILY
     Route: 065
     Dates: start: 20240429

REACTIONS (4)
  - Palpitations [Recovered/Resolved]
  - Brain fog [Recovered/Resolved]
  - Arthralgia [Recovering/Resolving]
  - Product substitution issue [Unknown]
